FAERS Safety Report 12497622 (Version 2)
Quarter: 2016Q2

REPORT INFORMATION
  Report Type: Spontaneous
  Country: US (occurrence: US)
  Receive Date: 20160625
  Receipt Date: 20160630
  Transmission Date: 20160815
  Serious: No
  Sender: FDA-Public Use
  Company Number: US-SHIRE-US201607644

PATIENT
  Age: 19 Year
  Sex: Male
  Weight: 42.63 kg

DRUGS (2)
  1. BACLOFEN. [Concomitant]
     Active Substance: BACLOFEN
     Indication: MUSCLE TONE DISORDER
     Dosage: 20 MG, 1X/DAY:QD
     Route: 050
  2. CARBATROL [Suspect]
     Active Substance: CARBAMAZEPINE
     Indication: SEIZURE
     Dosage: 200 MG, 1X/DAY:QD (CONTENTS THROUGH G-TUBE)
     Route: 050

REACTIONS (2)
  - Incorrect route of drug administration [Not Recovered/Not Resolved]
  - No adverse event [Not Recovered/Not Resolved]
